FAERS Safety Report 7059123-3 (Version None)
Quarter: 2010Q4

REPORT INFORMATION
  Report Type: 
  Country: None (occurrence: None)
  Receive Date: 20101025
  Receipt Date: 20101013
  Transmission Date: 20110411
  Serious: No
  Sender: FDA-Public Use
  Company Number: US-BIOGENIDEC-2010BI035963

PATIENT
  Age: 43 Year
  Sex: Female

DRUGS (1)
  1. TYSABRI [Suspect]
     Indication: MULTIPLE SCLEROSIS
     Route: 042
     Dates: start: 20100421

REACTIONS (10)
  - ACUTE STRESS DISORDER [None]
  - ASTHENIA [None]
  - FATIGUE [None]
  - INFUSION SITE HAEMATOMA [None]
  - MOBILITY DECREASED [None]
  - MUSCLE SPASMS [None]
  - ROAD TRAFFIC ACCIDENT [None]
  - TEMPERATURE INTOLERANCE [None]
  - TREMOR [None]
  - VEIN PAIN [None]
